FAERS Safety Report 6420205-8 (Version None)
Quarter: 2009Q4

REPORT INFORMATION
  Report Type: 
  Country: None (occurrence: None)
  Receive Date: 20091029
  Receipt Date: 20091016
  Transmission Date: 20100525
  Serious: Yes (Other)
  Sender: FDA-Public Use
  Company Number: PHHY2009DE45697

PATIENT
  Sex: Male

DRUGS (2)
  1. RASILEZ [Suspect]
     Indication: HYPERTENSION
     Dosage: 150 MG, BID
     Route: 048
     Dates: start: 20081001
  2. CRESTOR [Concomitant]
     Dosage: UNK
     Route: 048
     Dates: start: 20081101, end: 20090101

REACTIONS (1)
  - ARRHYTHMIA [None]
